FAERS Safety Report 7883256-2 (Version None)
Quarter: 2011Q4

REPORT INFORMATION
  Report Type: 
  Country: None (occurrence: None)
  Receive Date: 20111031
  Receipt Date: 20111026
  Transmission Date: 20120403
  Serious: Yes (Hospitalization)
  Sender: FDA-Public Use
  Company Number: SP05312

PATIENT
  Age: 45 Year
  Sex: Female
  Weight: 68.0396 kg

DRUGS (5)
  1. XIFAXAN [Suspect]
     Indication: HEPATIC CIRRHOSIS
     Dosage: 1100 MG (550 MG, 2 IN 1 D), ORAL
     Route: 048
     Dates: start: 20110401, end: 20110901
  2. DIURETIC [Concomitant]
  3. CELEBREX [Concomitant]
  4. PROPRANOLOL [Concomitant]
  5. LASIX [Concomitant]

REACTIONS (12)
  - INSOMNIA [None]
  - PARAESTHESIA [None]
  - AMMONIA INCREASED [None]
  - UPPER LIMB FRACTURE [None]
  - CHEST PAIN [None]
  - BALANCE DISORDER [None]
  - BLOOD POTASSIUM DECREASED [None]
  - SLEEP APNOEA SYNDROME [None]
  - DIZZINESS POSTURAL [None]
  - UNEVALUABLE EVENT [None]
  - MUSCULAR WEAKNESS [None]
  - FALL [None]
